FAERS Safety Report 8032559-X (Version None)
Quarter: 2011Q4

REPORT INFORMATION
  Report Type: 
  Country: None (occurrence: None)
  Receive Date: 20111228
  Receipt Date: 20111214
  Transmission Date: 20120403
  Serious: Yes (Hospitalization)
  Sender: FDA-Public Use
  Company Number: 2011SP058496

PATIENT
  Age: 48 Year
  Sex: Female

DRUGS (3)
  1. REBETOL [Suspect]
     Indication: HEPATITIS C
     Dosage: ;QD;, 200 MG;TIW;
     Dates: start: 20100201
  2. REBETOL [Suspect]
     Indication: HEPATITIS C
     Dosage: ;QD;, 200 MG;TIW;
     Dates: start: 20100326
  3. PEGASYS [Suspect]
     Indication: HEPATITIS C
     Dosage: 180 MCG;
     Dates: start: 20100201, end: 20100403

REACTIONS (11)
  - PYREXIA [None]
  - MYALGIA [None]
  - ANTINUCLEAR ANTIBODY POSITIVE [None]
  - SYSTEMIC LUPUS ERYTHEMATOSUS [None]
  - VOMITING [None]
  - HYPOTENSION [None]
  - PAIN [None]
  - DNA ANTIBODY POSITIVE [None]
  - CHILLS [None]
  - SEPSIS [None]
  - TACHYCARDIA [None]
